FAERS Safety Report 26128638 (Version 1)
Quarter: 2025Q4

REPORT INFORMATION
  Report Type: Report from Study
  Country: US (occurrence: US)
  Receive Date: 20251207
  Receipt Date: 20251207
  Transmission Date: 20260117
  Serious: Yes (Hospitalization)
  Sender: ABBVIE
  Company Number: US-ABBVIE-6578001

PATIENT
  Age: 55 Year
  Sex: Female

DRUGS (1)
  1. ARMOUR THYROID [Suspect]
     Active Substance: THYROID, PORCINE
     Indication: Thyroidectomy
     Route: 048
     Dates: start: 2004

REACTIONS (2)
  - Asthma [Unknown]
  - Coccidioidomycosis [Unknown]

NARRATIVE: CASE EVENT DATE: 20080101
